FAERS Safety Report 20749744 (Version 1)
Quarter: 2022Q2

REPORT INFORMATION
  Report Type: Spontaneous
  Country: US (occurrence: US)
  Receive Date: 20220426
  Receipt Date: 20220426
  Transmission Date: 20220720
  Serious: No
  Sender: FDA-Public Use
  Company Number: US-JNJFOC-20220437592

PATIENT
  Sex: Male

DRUGS (4)
  1. ERLEADA [Suspect]
     Active Substance: APALUTAMIDE
     Indication: Product used for unknown indication
     Route: 048
  2. ERLEADA [Suspect]
     Active Substance: APALUTAMIDE
     Route: 048
  3. ERLEADA [Suspect]
     Active Substance: APALUTAMIDE
     Route: 048
  4. WARFARIN [Concomitant]
     Active Substance: WARFARIN
     Indication: Atrial fibrillation

REACTIONS (3)
  - Memory impairment [Recovering/Resolving]
  - Dizziness [Recovering/Resolving]
  - Diarrhoea [Recovering/Resolving]
